FAERS Safety Report 20767407 (Version 2)
Quarter: 2022Q2

REPORT INFORMATION
  Report Type: Spontaneous
  Country: US (occurrence: US)
  Receive Date: 20220429
  Receipt Date: 20220630
  Transmission Date: 20220721
  Serious: No
  Sender: FDA-Public Use
  Company Number: US-LEO Pharma-342165

PATIENT
  Age: 44 Year
  Sex: Female

DRUGS (2)
  1. ADBRY [Suspect]
     Active Substance: TRALOKINUMAB-LDRM
     Indication: Eczema
     Dosage: INITIAL DOSE OF ADBRY WAS GIVEN ON 15-MAR-2022 AND MAINTENANCE DOSE WAS GIVEN ON 29-MAR-2022
     Dates: start: 20220315, end: 20220407
  2. ADBRY [Suspect]
     Active Substance: TRALOKINUMAB-LDRM
     Indication: Eczema
     Dosage: INITIAL DOSE OF ADBRY WAS GIVEN ON 15-MAR-2022 AND MAINTENANCE DOSE WAS GIVEN ON 29-MAR-2022
     Dates: start: 20220315, end: 20220407

REACTIONS (2)
  - Headache [Unknown]
  - Headache [Unknown]
